FAERS Safety Report 18571145 (Version 1)
Quarter: 2020Q4

REPORT INFORMATION
  Report Type: Spontaneous
  Country: RU (occurrence: RU)
  Receive Date: 20201202
  Receipt Date: 20201202
  Transmission Date: 20210114
  Serious: Yes (Hospitalization, Other)
  Sender: FDA-Public Use
  Company Number: RU-ASTRAZENECA-2020SF56805

PATIENT
  Age: 50 Year
  Sex: Female

DRUGS (2)
  1. DIABETON [Concomitant]
     Active Substance: GLICLAZIDE
  2. XIGDUO XR [Suspect]
     Active Substance: DAPAGLIFLOZIN PROPANEDIOL\METFORMIN HYDROCHLORIDE
     Indication: TYPE 2 DIABETES MELLITUS
     Dosage: 10/1000 MG DAILY
     Route: 048

REACTIONS (6)
  - Tachycardia [Unknown]
  - Asthenia [Unknown]
  - Blood glucose increased [Unknown]
  - Blood pressure increased [Unknown]
  - Abdominal discomfort [Unknown]
  - Drug ineffective [Recovered/Resolved]
